FAERS Safety Report 6392308-8 (Version None)
Quarter: 2009Q4

REPORT INFORMATION
  Report Type: 
  Country: None (occurrence: None)
  Receive Date: 20091007
  Receipt Date: 20090924
  Transmission Date: 20100525
  Serious: Yes (Hospitalization)
  Sender: FDA-Public Use
  Company Number: PHHY2009FR41272

PATIENT
  Age: 64 Year
  Sex: Female

DRUGS (3)
  1. ZOMETA [Suspect]
     Indication: HYPERCALCAEMIA
     Route: 065
  2. ZOMETA [Suspect]
     Indication: PROPHYLAXIS
  3. BONDRONAT [Concomitant]
     Dosage: UNK
     Route: 065
     Dates: start: 20080701

REACTIONS (8)
  - FACIAL PAIN [None]
  - LOOSE TOOTH [None]
  - OSTEONECROSIS [None]
  - PALATAL DISORDER [None]
  - SINUSITIS [None]
  - SWELLING [None]
  - TOOTH INFECTION [None]
  - TOOTHACHE [None]
